FAERS Safety Report 24049916 (Version 2)
Quarter: 2024Q3

REPORT INFORMATION
  Report Type: Spontaneous
  Country: DE (occurrence: DE)
  Receive Date: 20240704
  Receipt Date: 20240705
  Transmission Date: 20241017
  Serious: Yes (Other)
  Sender: ASTELLAS
  Company Number: DE-ASTELLAS-2024US018528

PATIENT
  Age: 8 Decade
  Sex: Male

DRUGS (2)
  1. ENZALUTAMIDE [Suspect]
     Active Substance: ENZALUTAMIDE
     Indication: Antiandrogen therapy
     Dosage: UNK UNK, UNKNOWN FREQ.
     Route: 065
     Dates: start: 202402
  2. TALAZOPARIB [Suspect]
     Active Substance: TALAZOPARIB
     Indication: Antiandrogen therapy
     Dosage: UNK UNK, UNKNOWN FREQ.
     Route: 065
     Dates: start: 202402

REACTIONS (1)
  - Haemoglobin decreased [Unknown]

NARRATIVE: CASE EVENT DATE: 20240501
